FAERS Safety Report 5718423-7 (Version None)
Quarter: 2008Q2

REPORT INFORMATION
  Report Type: 
  Country: None (occurrence: None)
  Receive Date: 20080425
  Receipt Date: 20080422
  Transmission Date: 20081010
  Serious: Yes (Death)
  Sender: FDA-Public Use
  Company Number: PHBS2008CA04216

PATIENT
  Age: 67 Year
  Sex: Female

DRUGS (6)
  1. METOPROLOL TARTRATE [Suspect]
     Indication: CARDIAC FAILURE CONGESTIVE
  2. LOSARTAN POTASSIUM [Concomitant]
  3. WARFARIN SODIUM [Concomitant]
  4. CLODRONATE DISODIUM [Concomitant]
  5. TIAZAC [Suspect]
  6. DIURETICS [Concomitant]

REACTIONS (5)
  - CARDIAC FAILURE [None]
  - CARDIOGENIC SHOCK [None]
  - DIZZINESS [None]
  - HEART RATE DECREASED [None]
  - NAUSEA [None]
